FAERS Safety Report 17105388 (Version 2)
Quarter: 2019Q4

REPORT INFORMATION
  Report Type: Spontaneous
  Country: NL (occurrence: NL)
  Receive Date: 20191203
  Receipt Date: 20191209
  Transmission Date: 20200122
  Serious: Yes (Other)
  Sender: FDA-Public Use
  Company Number: NL-MYLANLABS-2019M1117202

PATIENT
  Sex: Male
  Weight: 67 kg

DRUGS (1)
  1. SPIRONOLACTONE. [Suspect]
     Active Substance: SPIRONOLACTONE
     Indication: OEDEMA
     Dosage: 1X PER DAG
     Route: 048
     Dates: start: 201504, end: 201812

REACTIONS (3)
  - Oligospermia [Recovered/Resolved]
  - Spermatogenesis abnormal [Recovered/Resolved]
  - Asthenospermia [Recovered/Resolved]
